FAERS Safety Report 11196729 (Version 1)
Quarter: 2015Q2

REPORT INFORMATION
  Report Type: Spontaneous
  Country: US (occurrence: US)
  Receive Date: 20150617
  Receipt Date: 20150617
  Transmission Date: 20150821
  Serious: Yes (Other)
  Sender: FDA-Public Use
  Company Number: US-BANPHARM-20153973

PATIENT
  Age: 50 Year
  Sex: Female
  Weight: 90.26 kg

DRUGS (5)
  1. VITAMIN D [Concomitant]
     Active Substance: CHOLECALCIFEROL
     Dosage: 3,000 IU, QD,
  2. FISH OIL [Concomitant]
     Active Substance: FISH OIL
     Dosage: QD,
  3. CALCIUM [Concomitant]
     Active Substance: CALCIUM
     Dosage: QD,
  4. ZYRTEC [Suspect]
     Active Substance: CETIRIZINE HYDROCHLORIDE
     Indication: MULTIPLE ALLERGIES
     Dosage: 1 DF, QD,
     Route: 048
     Dates: end: 20150603
  5. MULTIVITAMIN [Concomitant]
     Active Substance: VITAMINS
     Dosage: QD,

REACTIONS (3)
  - Hepatic steatosis [Not Recovered/Not Resolved]
  - Hepatic enzyme increased [Not Recovered/Not Resolved]
  - Hepatic enzyme increased [Not Recovered/Not Resolved]

NARRATIVE: CASE EVENT DATE: 2012
